FAERS Safety Report 23501346 (Version 2)
Quarter: 2024Q1

REPORT INFORMATION
  Report Type: Report from Study
  Country: CN (occurrence: CN)
  Receive Date: 20240208
  Receipt Date: 20240209
  Transmission Date: 20240410
  Serious: Yes (Other)
  Sender: FDA-Public Use
  Company Number: CN-ALLERGAN-2305132US

PATIENT

DRUGS (1)
  1. BOTULINUM TOXIN TYPE A [Suspect]
     Active Substance: BOTULINUM TOXIN TYPE A
     Indication: Muscle hypertrophy
     Dosage: TIME INTERVAL: AS NECESSARY
     Dates: start: 20221222, end: 20221222

REACTIONS (11)
  - Poisoning [Unknown]
  - Off label use [Unknown]
  - Dizziness [Unknown]
  - Syncope [Unknown]
  - Eating disorder [Unknown]
  - Fatigue [Unknown]
  - Tremor [Unknown]
  - Vision blurred [Unknown]
  - Muscular weakness [Unknown]
  - Dyspnoea [Unknown]
  - Dysphagia [Unknown]

NARRATIVE: CASE EVENT DATE: 20221225
